FAERS Safety Report 12887893 (Version 2)
Quarter: 2017Q1

REPORT INFORMATION
  Report Type: Spontaneous
  Country: US (occurrence: US)
  Receive Date: 20161027
  Receipt Date: 20170113
  Transmission Date: 20170428
  Serious: No
  Sender: FDA-Public Use
  Company Number: US-ASTRAZENECA-2016SF08438

PATIENT
  Age: 53 Year
  Sex: Female
  Weight: 65.8 kg

DRUGS (3)
  1. ZOFRAN [Concomitant]
     Active Substance: ONDANSETRON HYDROCHLORIDE
  2. LYNPARZA [Suspect]
     Active Substance: OLAPARIB
     Indication: OVARIAN CANCER
     Dosage: 8 CAPS IN THE MORNING AND 8 CAPS AT NIGHT
     Route: 048
     Dates: start: 20161003
  3. PAIN MEDS [Concomitant]
     Active Substance: UNSPECIFIED INGREDIENT

REACTIONS (5)
  - Fear of death [Unknown]
  - Nausea [Unknown]
  - Dysgeusia [Not Recovered/Not Resolved]
  - Stress [Unknown]
  - Fatigue [Not Recovered/Not Resolved]
